FAERS Safety Report 6440355-X (Version None)
Quarter: 2009Q4

REPORT INFORMATION
  Report Type: 
  Country: None (occurrence: None)
  Receive Date: 20091113
  Receipt Date: 20091102
  Transmission Date: 20100525
  Serious: Yes (Hospitalization)
  Sender: FDA-Public Use
  Company Number: PHHY2009SE48052

PATIENT
  Age: 68 Year
  Sex: Female

DRUGS (1)
  1. ACLASTA [Suspect]
     Dosage: 5 MG, UNK
     Dates: start: 20090423

REACTIONS (7)
  - ADRENAL DISORDER [None]
  - ADRENAL INSUFFICIENCY [None]
  - BLOOD CORTICOTROPHIN DECREASED [None]
  - DIARRHOEA [None]
  - FATIGUE [None]
  - MYALGIA [None]
  - PALPITATIONS [None]
